FAERS Safety Report 8846097 (Version 1)
Quarter: 2012Q4

REPORT INFORMATION
  Report Type: 
  Country: CN (occurrence: CN)
  Receive Date: 20121017
  Receipt Date: 20121017
  Transmission Date: 20130627
  Serious: Yes (Other)
  Sender: FDA-Public Use
  Company Number: PHHY2012CN091622

PATIENT

DRUGS (8)
  1. MYCOPHENOLATE MOFETIL [Suspect]
     Indication: GRAFT VERSUS HOST DISEASE
     Dosage: 30 mg/kg per day
  2. MYCOPHENOLATE MOFETIL [Suspect]
     Dosage: 0.5- 1 g per day
  3. METHYLPREDNISOLONE [Suspect]
     Indication: GRAFT VERSUS HOST DISEASE
     Dosage: 15-50 mg/kg per day
     Route: 042
  4. METHYLPREDNISOLONE [Suspect]
     Dosage: 2-5 mg/kg per day
     Route: 042
  5. METHYLPREDNISOLONE [Suspect]
     Dosage: 1-2 mg per kg per day
  6. METHYLPREDNISOLONE [Suspect]
     Dosage: 42 mg/kg per day
  7. METHYLPREDNISOLONE [Suspect]
     Dosage: 10 mg/kg per day
  8. TACROLIMUS [Suspect]

REACTIONS (4)
  - Arrhythmia [Recovered/Resolved]
  - Pneumonia [Recovered/Resolved]
  - Azotaemia [Unknown]
  - Hepatic function abnormal [Unknown]
